FAERS Safety Report 8845960 (Version 1)
Quarter: 2012Q4

REPORT INFORMATION
  Report Type: 
  Country: FR (occurrence: FR)
  Receive Date: 20121017
  Receipt Date: 20121017
  Transmission Date: 20130627
  Serious: Yes (Death, Hospitalization)
  Sender: FDA-Public Use
  Company Number: FR-ROCHE-1144913

PATIENT
  Age: 70 Year
  Sex: Female

DRUGS (7)
  1. ROCEPHINE [Suspect]
     Indication: FEBRILE INFECTION
     Route: 065
     Dates: start: 20120530
  2. TIENAM [Suspect]
     Indication: FEBRILE INFECTION
     Route: 065
     Dates: start: 20120520, end: 20120530
  3. TIENAM [Suspect]
     Route: 065
     Dates: start: 20120709, end: 20120719
  4. CIFLOX [Suspect]
     Indication: FEBRILE INFECTION
     Route: 065
     Dates: start: 20120520, end: 20120530
  5. OFLOCET [Suspect]
     Indication: FEBRILE INFECTION
     Route: 065
     Dates: start: 20120530, end: 20120605
  6. VANCOMYCINE [Suspect]
     Indication: FEBRILE INFECTION
     Route: 065
     Dates: start: 20120503, end: 20120524
  7. GENTAMICINE [Suspect]
     Indication: SEPSIS
     Route: 065
     Dates: start: 20120615, end: 20120719

REACTIONS (8)
  - Drug reaction with eosinophilia and systemic symptoms [Fatal]
  - Staphylococcal infection [None]
  - Coma [None]
  - Hypoglycaemia [None]
  - Acute respiratory distress syndrome [None]
  - Ecthyma [None]
  - Dermatophytosis [None]
  - Cardiac disorder [None]
